FAERS Safety Report 13919391 (Version 2)
Quarter: 2018Q2

REPORT INFORMATION
  Report Type: Report from Study
  Country: US (occurrence: US)
  Receive Date: 20170830
  Receipt Date: 20180503
  Transmission Date: 20180711
  Serious: No
  Sender: FDA-Public Use
  Company Number: PHEH2017US027434

PATIENT
  Age: 28 Year
  Sex: Female

DRUGS (1)
  1. AFINITOR [Suspect]
     Active Substance: EVEROLIMUS
     Indication: ANGIOMYOLIPOMA
     Dosage: 5 MG, QD
     Route: 048
     Dates: start: 20160617, end: 20171106

REACTIONS (2)
  - Teething [Not Recovered/Not Resolved]
  - Dental caries [Unknown]

NARRATIVE: CASE EVENT DATE: 20170816
